FAERS Safety Report 5222671-2 (Version None)
Quarter: 2007Q1

REPORT INFORMATION
  Report Type: 
  Country: None (occurrence: None)
  Receive Date: 20061208
  Receipt Date: 20051027
  Transmission Date: 20070707
  Serious: Yes (Other)
  Sender: FDA-Public Use
  Company Number: 2005148692

PATIENT
  Sex: Male
  Weight: 65.7716 kg

DRUGS (1)
  1. VIAGRA [Suspect]
     Indication: ILL-DEFINED DISORDER
     Dosage: ORAL
     Route: 048
     Dates: start: 20040101

REACTIONS (7)
  - BLOOD PRESSURE ABNORMAL [None]
  - CHILLS [None]
  - ERECTION INCREASED [None]
  - INTENTIONAL DRUG MISUSE [None]
  - TREMOR [None]
  - URETHRAL DISCHARGE [None]
  - VISION BLURRED [None]
